FAERS Safety Report 13658386 (Version 1)
Quarter: 2017Q2

REPORT INFORMATION
  Report Type: Spontaneous
  Country: US (occurrence: US)
  Receive Date: 20170616
  Receipt Date: 20170616
  Transmission Date: 20170830
  Serious: No
  Sender: FDA-Public Use
  Company Number: US-ALEXION PHARMACEUTICALS INC.-A201706350

PATIENT
  Age: 66 Year
  Sex: Female

DRUGS (1)
  1. SOLIRIS [Suspect]
     Active Substance: ECULIZUMAB
     Indication: PAROXYSMAL NOCTURNAL HAEMOGLOBINURIA
     Dosage: UNK
     Route: 042
     Dates: start: 201201

REACTIONS (12)
  - High density lipoprotein decreased [Unknown]
  - Gastritis [Unknown]
  - Blood triglycerides increased [Unknown]
  - Very low density lipoprotein increased [Unknown]
  - Aspartate aminotransferase increased [Unknown]
  - Alanine aminotransferase increased [Unknown]
  - Haemoglobin decreased [Unknown]
  - Haematocrit decreased [Unknown]
  - Cytopenia [Unknown]
  - Blood bilirubin increased [Unknown]
  - Red blood cell sedimentation rate increased [Unknown]
  - Mean cell volume increased [Unknown]

NARRATIVE: CASE EVENT DATE: 201203
